FAERS Safety Report 14379835 (Version 1)
Quarter: 2018Q1

REPORT INFORMATION
  Report Type: Spontaneous
  Country: US (occurrence: US)
  Receive Date: 20180112
  Receipt Date: 20180112
  Transmission Date: 20180509
  Serious: No
  Sender: FDA-Public Use
  Company Number: US-PFIZER INC-2018008537

PATIENT
  Age: 50 Year
  Sex: Female
  Weight: 89.81 kg

DRUGS (4)
  1. ATROPINE SULFATE/DIPHENOXYLATE HYDROCHLORIDE [Suspect]
     Active Substance: ATROPINE SULFATE\DIPHENOXYLATE HYDROCHLORIDE
     Indication: GASTRIC DISORDER
  2. IMODIUM [Concomitant]
     Active Substance: LOPERAMIDE HYDROCHLORIDE
     Indication: SHORT-BOWEL SYNDROME
     Dosage: UNK UNK, AS NEEDED (2-6 TABLETS BY MOUTH A DAY AS NEEDED)
     Route: 048
  3. ATROPINE SULFATE/DIPHENOXYLATE HYDROCHLORIDE [Suspect]
     Active Substance: ATROPINE SULFATE\DIPHENOXYLATE HYDROCHLORIDE
     Indication: SHORT-BOWEL SYNDROME
     Dosage: UNK [DIPHENOXYLATE HYDROCHLORIDE 2.5 MG]/[ATROPINE SULFATE 0.025 MG]/1-2 TABLETS BY MOUTH EVERY DAY
     Route: 048
     Dates: end: 201711
  4. ATROPINE SULFATE/DIPHENOXYLATE HYDROCHLORIDE [Suspect]
     Active Substance: ATROPINE SULFATE\DIPHENOXYLATE HYDROCHLORIDE
     Indication: DIARRHOEA
     Dosage: UNK [DIPHENOXYLATE HYDROCHLORIDE 2.5 MG]/[ATROPINE SULFATE 0.025 MG]/1-2 TABLETS BY MOUTH EVERY DAY
     Route: 048

REACTIONS (4)
  - Drug ineffective [Recovered/Resolved]
  - Haemorrhoids [Unknown]
  - Loss of personal independence in daily activities [Unknown]
  - Product use issue [Unknown]

NARRATIVE: CASE EVENT DATE: 201708
